FAERS Safety Report 4362734-7 (Version None)
Quarter: 2004Q2

REPORT INFORMATION
  Report Type: 
  Country: None (occurrence: None)
  Receive Date: 20040517
  Receipt Date: 20040408
  Transmission Date: 20050107
  Serious: No
  Sender: FDA-Public Use
  Company Number: S04-USA-02033-01

PATIENT
  Age: 84 Year
  Sex: Female

DRUGS (13)
  1. NAMENDA [Suspect]
     Indication: VASCULAR DEMENTIA
     Dosage: 10 MG BID PO
     Route: 048
  2. NAMENDA [Suspect]
     Indication: VASCULAR DEMENTIA
     Dosage: 5 MG QD PO
     Route: 048
  3. NAMENDA [Suspect]
     Indication: VASCULAR DEMENTIA
     Dosage: 5 MG BID PO
     Route: 048
  4. NAMENDA [Suspect]
     Indication: VASCULAR DEMENTIA
     Dosage: 10 MG QAM PO
     Route: 048
  5. NAMENDA [Suspect]
     Indication: VASCULAR DEMENTIA
     Dosage: 5 MG QHS PO
     Route: 048
  6. ARICEPT [Concomitant]
  7. KLONOPIN [Concomitant]
  8. PRILOSEC [Concomitant]
  9. LIPITOR [Concomitant]
  10. BLOOD PRESSURE PILL (NOS) [Concomitant]
  11. CAPTOPRIL [Concomitant]
  12. ASPIRIN [Concomitant]
  13. FOLIC ACID [Concomitant]

REACTIONS (1)
  - HYPERSOMNIA [None]
